FAERS Safety Report 4330142-0 (Version None)
Quarter: 2004Q2

REPORT INFORMATION
  Report Type: 
  Country: None (occurrence: None)
  Receive Date: 20040402
  Receipt Date: 20040325
  Transmission Date: 20050107
  Serious: Yes (Hospitalization)
  Sender: FDA-Public Use
  Company Number: PHFR2004GB01570

PATIENT
  Age: 52 Year
  Sex: Female

DRUGS (5)
  1. CAFERGOT [Suspect]
     Indication: MIGRAINE
     Dosage: 2/100
     Route: 054
     Dates: start: 20040309, end: 20040309
  2. OMEPRAZOLE [Concomitant]
     Dosage: 20 MG, QD/MANE
     Route: 065
  3. MIGRALEVE [Concomitant]
     Indication: MIGRAINE
     Dosage: 1 PRN
     Route: 065
     Dates: start: 20040308, end: 20040309
  4. THYROXINE [Concomitant]
     Indication: HYPOTHYROIDISM
     Dosage: 75UG/DAY
     Route: 065
     Dates: start: 20030501
  5. PROPRANOLOL [Concomitant]
     Indication: MIGRAINE
     Dosage: 80 MG, BID
     Route: 065
     Dates: start: 20040209

REACTIONS (4)
  - HAEMATEMESIS [None]
  - MALLORY-WEISS SYNDROME [None]
  - NAUSEA [None]
  - PHOTOPHOBIA [None]
